FAERS Safety Report 8857922 (Version 1)
Quarter: 2012Q4

REPORT INFORMATION
  Report Type: 
  Country: US (occurrence: US)
  Receive Date: 20121024
  Receipt Date: 20121024
  Transmission Date: 20130627
  Serious: No
  Sender: FDA-Public Use
  Company Number: US-AMGEN-USASP2012003305

PATIENT
  Age: 58 Year
  Sex: Male
  Weight: 83.9 kg

DRUGS (9)
  1. ENBREL [Suspect]
     Indication: PRODUCT USED FOR UNKNOWN INDICATION
     Dosage: 50 mg, UNK
  2. TYLENOL /00020001/ [Concomitant]
     Dosage: UNK
     Route: 048
  3. GABAPENTIN [Concomitant]
     Dosage: 300 mg, UNK
     Route: 048
  4. MOMETASONE [Concomitant]
     Dosage: 0.1 %, UNK
     Route: 061
  5. DOVONEX [Concomitant]
     Dosage: 0.005 %, UNK
     Route: 061
  6. ASA [Concomitant]
     Dosage: 81 mg, UNK
     Route: 048
  7. LIPITOR [Concomitant]
     Dosage: 10 mg, UNK
     Route: 048
  8. ZOLOFT [Concomitant]
     Dosage: 25 mg, UNK
     Route: 048
  9. CLONAZEPAM [Concomitant]
     Dosage: 0.5 mg, UNK
     Route: 048

REACTIONS (1)
  - Drug ineffective [Unknown]
